FAERS Safety Report 7292754-4 (Version None)
Quarter: 2011Q1

REPORT INFORMATION
  Report Type: 
  Country: None (occurrence: None)
  Receive Date: 20110215
  Receipt Date: 20110202
  Transmission Date: 20110831
  Serious: Yes (Hospitalization)
  Sender: FDA-Public Use
  Company Number: AT-SANOFI-AVENTIS-2011SA007027

PATIENT
  Sex: Female
  Weight: 62 kg

DRUGS (8)
  1. CALCIUM [Concomitant]
     Route: 065
  2. SEVELAMER [Concomitant]
     Route: 065
  3. KEPPRA [Concomitant]
     Route: 065
  4. FERRLECIT [Suspect]
     Indication: IRON DEFICIENCY
     Route: 042
     Dates: start: 20100331, end: 20110201
  5. PANTOLOC ^BYK^ [Concomitant]
     Route: 065
  6. RAPAMUNE [Concomitant]
     Route: 065
  7. CINACALCET HYDROCHLORIDE [Concomitant]
     Route: 065
  8. FRAGMIN [Concomitant]
     Route: 065

REACTIONS (6)
  - CHILLS [None]
  - ABDOMINAL PAIN LOWER [None]
  - NAUSEA [None]
  - PYREXIA [None]
  - HAEMOLYSIS [None]
  - DERMATITIS EXFOLIATIVE [None]
